FAERS Safety Report 10156335 (Version 3)
Quarter: 2014Q2

REPORT INFORMATION
  Report Type: Spontaneous
  Country: SE (occurrence: SE)
  Receive Date: 20140507
  Receipt Date: 20140521
  Transmission Date: 20141212
  Serious: Yes (Disabling)
  Sender: FDA-Public Use
  Company Number: SE-PFIZER INC-2014108555

PATIENT
  Age: 49 Year
  Sex: Female
  Weight: 54 kg

DRUGS (2)
  1. XALKORI [Suspect]
     Indication: LUNG NEOPLASM MALIGNANT
     Dosage: 250 MG, 2X/DAY, 6 TREATMENTS
     Route: 048
     Dates: start: 201305
  2. OMEPRAZOLE [Concomitant]
     Dosage: 20 MG, 1X/DAY
     Dates: start: 2013

REACTIONS (3)
  - Periodontitis [Not Recovered/Not Resolved]
  - Tooth loss [Not Recovered/Not Resolved]
  - Dental caries [Not Recovered/Not Resolved]
